FAERS Safety Report 16409114 (Version 1)
Quarter: 2019Q2

REPORT INFORMATION
  Report Type: Spontaneous
  Country: US (occurrence: US)
  Receive Date: 20190610
  Receipt Date: 20190610
  Transmission Date: 20190711
  Serious: No
  Sender: FDA-Public Use
  Company Number: US-TEVA-2019-US-1052808

PATIENT
  Age: 5 Decade
  Sex: Female

DRUGS (4)
  1. PREDNISOLONE. [Suspect]
     Active Substance: PREDNISOLONE
     Indication: ORGANISING PNEUMONIA
     Dosage: THE DOSE WAS INCREAESD TO TREAT CRYPTOGENIC ORGANISING PNEUMONIA
     Route: 065
  2. BEVACIZUMAB. [Concomitant]
     Active Substance: BEVACIZUMAB
     Indication: CYSTOID MACULAR OEDEMA
     Dosage: RECEIVED SIX INJECTION
     Route: 050
  3. PREDNISOLONE. [Suspect]
     Active Substance: PREDNISOLONE
     Indication: EOSINOPHILIC PNEUMONIA
     Dosage: INITIAL DOSAGE NOT STATED
     Route: 065
  4. PREDNISOLONE. [Suspect]
     Active Substance: PREDNISOLONE
     Dosage: TAPERED TO 40MG OVER THE COURSE OF 2 WEEKS
     Route: 065

REACTIONS (2)
  - Affective disorder [Unknown]
  - Weight increased [Unknown]
